FAERS Safety Report 12270517 (Version 1)
Quarter: 2016Q2

REPORT INFORMATION
  Report Type: Spontaneous
  Country: US (occurrence: US)
  Receive Date: 20160415
  Receipt Date: 20160415
  Transmission Date: 20160815
  Serious: No
  Sender: FDA-Public Use
  Company Number: US-BAYER-2016-071883

PATIENT
  Age: 2 Year
  Sex: Female

DRUGS (3)
  1. MUCINEX [Concomitant]
     Active Substance: GUAIFENESIN
     Dosage: 0.5 TABLESPOON UNK FREQUENCY
  2. CHILDREN CLARITIN ALLERGY [Suspect]
     Active Substance: LORATADINE
     Indication: DERMATITIS ALLERGIC
     Dosage: UNK
     Route: 048
     Dates: start: 2016
  3. CHILDREN CLARITIN ALLERGY [Suspect]
     Active Substance: LORATADINE
     Indication: DERMATITIS ALLERGIC
     Dosage: 2 DF, ONCE
     Route: 048
     Dates: start: 20160414, end: 20160414

REACTIONS (2)
  - Extra dose administered [Recovered/Resolved]
  - Off label use [None]

NARRATIVE: CASE EVENT DATE: 2016
